FAERS Safety Report 5948886-3 (Version None)
Quarter: 2008Q4

REPORT INFORMATION
  Report Type: 
  Country: None (occurrence: None)
  Receive Date: 20081111
  Receipt Date: 20081030
  Transmission Date: 20090506
  Serious: Yes (Hospitalization)
  Sender: FDA-Public Use
  Company Number: FR-CELGENEUS-THAFR200800342

PATIENT
  Sex: Male

DRUGS (27)
  1. THALIDOMIDE [Suspect]
     Route: 048
     Dates: start: 20080609, end: 20080627
  2. THALIDOMIDE [Suspect]
     Route: 048
     Dates: start: 20080701, end: 20080704
  3. THALIDOMIDE [Suspect]
     Route: 048
     Dates: start: 20080908, end: 20080919
  4. ZYLORIC [Suspect]
     Dates: start: 20080522, end: 20080627
  5. ZYLORIC [Suspect]
     Dates: start: 20080702, end: 20080705
  6. OROKEN [Suspect]
     Indication: PROPHYLAXIS URINARY TRACT INFECTION
     Route: 048
     Dates: start: 20080609, end: 20080704
  7. OROKEN [Suspect]
  8. MECIR [Suspect]
     Route: 048
     Dates: start: 20080613, end: 20080706
  9. MECIR [Suspect]
  10. CIPROFLOXACIN HCL [Concomitant]
     Dates: start: 20080515, end: 20080518
  11. ROCEPHIN [Concomitant]
     Dates: start: 20080518, end: 20080520
  12. ROCEPHIN [Concomitant]
     Dates: start: 20080616, end: 20080620
  13. DEXAMETHAONE [Concomitant]
     Indication: MULTIPLE MYELOMA
     Dates: start: 20080521, end: 20080524
  14. DEXAMETHAONE [Concomitant]
     Dates: start: 20081001
  15. DEXAMETHAONE [Concomitant]
     Dates: start: 20080728
  16. DEXAMETHAONE [Concomitant]
     Dates: start: 20080908
  17. ALKERAN [Concomitant]
     Indication: MULTIPLE MYELOMA
     Dates: start: 20080523, end: 20080527
  18. ALKERAN [Concomitant]
     Dates: start: 20080728
  19. ALKERAN [Concomitant]
     Dates: start: 20080908
  20. ASPEGIC 325 [Concomitant]
     Dates: start: 20080706
  21. CHILBROPROSCAR [Concomitant]
     Indication: URINARY TRACT INFECTION
     Dates: start: 20080616, end: 20080623
  22. OFLOCET [Concomitant]
     Indication: DRUG USE FOR UNKNOWN INDICATION
     Dates: start: 20080616
  23. FOSRENOL [Concomitant]
     Indication: DRUG USE FOR UNKNOWN INDICATION
     Dates: end: 20080501
  24. NEXIUM [Concomitant]
     Indication: REFLUX OESOPHAGITIS
     Route: 048
     Dates: start: 20080522, end: 20080701
  25. INIPOMP [Concomitant]
     Indication: DRUG USE FOR UNKNOWN INDICATION
     Dates: start: 20080701, end: 20080704
  26. EPREX [Concomitant]
     Indication: DRUG USE FOR UNKNOWN INDICATION
  27. ZOLPIDEM [Concomitant]
     Indication: DRUG USE FOR UNKNOWN INDICATION

REACTIONS (3)
  - EOSINOPHIL COUNT INCREASED [None]
  - GENERALISED ERYTHEMA [None]
  - VARICELLA [None]
